FAERS Safety Report 4533446-1 (Version None)
Quarter: 2004Q4

REPORT INFORMATION
  Report Type: 
  Country: None (occurrence: None)
  Receive Date: 20041210
  Receipt Date: 20040923
  Transmission Date: 20050328
  Serious: Yes (Hospitalization)
  Sender: FDA-Public Use
  Company Number: RS004728-USA

PATIENT
  Age: 60 Year
  Sex: Female

DRUGS (2)
  1. ACIPHEX [Suspect]
     Indication: GASTROOESOPHAGEAL REFLUX DISEASE
     Dosage: 20 MG, ORAL
     Route: 048
     Dates: start: 20040701
  2. GLUCOTROL [Concomitant]

REACTIONS (2)
  - PANCREATITIS [None]
  - STOOL ANALYSIS ABNORMAL [None]
